FAERS Safety Report 8789078 (Version 1)
Quarter: 2012Q4

REPORT INFORMATION
  Report Type: 
  Country: US (occurrence: US)
  Receive Date: 20120917
  Receipt Date: 20120917
  Transmission Date: 20130627
  Serious: Yes (Other)
  Sender: FDA-Public Use
  Company Number: US-009507513-1209USA004001

PATIENT

DRUGS (4)
  1. REBETOL [Suspect]
     Indication: HEPATITIS C
     Dosage: 600 mg, bid
     Dates: start: 20120625
  2. REBETOL [Suspect]
     Dosage: 600 mg, qd
  3. TELAPREVIR [Concomitant]
     Indication: HEPATITIS C
     Dosage: UNK
     Dates: start: 20120625, end: 20120905
  4. PEGASYS [Concomitant]
     Indication: HEPATITIS C
     Dosage: 135 Microgram, qw
     Dates: start: 20120625

REACTIONS (1)
  - Transfusion [Unknown]
